FAERS Safety Report 13584785 (Version 1)
Quarter: 2017Q2

REPORT INFORMATION
  Report Type: Spontaneous
  Country: US (occurrence: US)
  Receive Date: 20170526
  Receipt Date: 20170526
  Transmission Date: 20170830
  Serious: Yes (Hospitalization, Other)
  Sender: FDA-Public Use
  Company Number: US-BAYER-2017-094521

PATIENT
  Sex: Female

DRUGS (15)
  1. PROMETHAZINE [PROMETHAZINE] [Concomitant]
     Dosage: 25 MG, UNK, 4-6 HR
  2. PROAIR HFA [Concomitant]
     Active Substance: ALBUTEROL SULFATE
     Dosage: UNK, HFA, 4-6HR
  3. FENTANYL. [Concomitant]
     Active Substance: FENTANYL
  4. HYDROCORTIZON [Concomitant]
  5. NEURONTIN [Concomitant]
     Active Substance: GABAPENTIN
     Dosage: 1 DF, TID
  6. FLONASE [Concomitant]
     Active Substance: FLUTICASONE PROPIONATE
     Dosage: 0.05 MG, UNK, SPRAY
     Dates: start: 20140218
  7. MILNACIPRAN [Concomitant]
     Active Substance: MILNACIPRAN
     Dosage: 50 MG, BID
     Route: 048
  8. VICODIN [Concomitant]
     Active Substance: ACETAMINOPHEN\HYDROCODONE BITARTRATE
  9. BAYER ASPIRIN [Suspect]
     Active Substance: ASPIRIN
     Dosage: 81 MG, QD
  10. HYDRAZINE [Concomitant]
     Active Substance: HYDRAZINE SULFATE
  11. COLACE [Concomitant]
     Active Substance: DOCUSATE SODIUM
  12. HYDROCHLOROTHIAZIDE. [Concomitant]
     Active Substance: HYDROCHLOROTHIAZIDE
     Dosage: 12.5 MG, QD, MOUTH
  13. PRILOSEC [Concomitant]
     Active Substance: OMEPRAZOLE MAGNESIUM
  14. IPRATROPIUM [Concomitant]
     Active Substance: IPRATROPIUM
     Indication: COUGH
     Dosage: 0.029 MG, PRN
  15. ZOLOFT [Concomitant]
     Active Substance: SERTRALINE HYDROCHLORIDE
     Route: 048

REACTIONS (2)
  - Renal failure [Not Recovered/Not Resolved]
  - Renal impairment [Not Recovered/Not Resolved]

NARRATIVE: CASE EVENT DATE: 2006
